FAERS Safety Report 14319019 (Version 1)
Quarter: 2017Q4

REPORT INFORMATION
  Report Type: Spontaneous
  Country: US (occurrence: US)
  Receive Date: 20171222
  Receipt Date: 20171222
  Transmission Date: 20180321
  Serious: No
  Sender: FDA-Public Use
  Company Number: US-ASTRAZENECA-2017SF31167

PATIENT
  Age: 29187 Day
  Sex: Female
  Weight: 63.5 kg

DRUGS (8)
  1. BYDUREON [Suspect]
     Active Substance: EXENATIDE
     Indication: DIABETES MELLITUS
     Route: 058
     Dates: start: 20150128
  2. FERROUS SULFATE. [Concomitant]
     Active Substance: FERROUS SULFATE
  3. ASPIRIN. [Concomitant]
     Active Substance: ASPIRIN
  4. GLIMEPIRIDE. [Concomitant]
     Active Substance: GLIMEPIRIDE
     Indication: DIABETES MELLITUS
     Dosage: 4 MG, HALF TAB ONCE DAILY
     Route: 048
  5. HYDROXYUREA. [Concomitant]
     Active Substance: HYDROXYUREA
     Indication: PLATELET DISORDER
  6. LOSARTAN. [Concomitant]
     Active Substance: LOSARTAN
  7. LODAPINE [Concomitant]
     Indication: BLOOD PRESSURE ABNORMAL
  8. TRIAMT-HCTZ [Concomitant]
     Active Substance: HYDROCHLOROTHIAZIDE\TRIAMTERENE
     Indication: BLOOD PRESSURE ABNORMAL
     Dosage: 75 -50 MG ONCE DAILY

REACTIONS (3)
  - Injection site haemorrhage [Recovered/Resolved]
  - Blood glucose decreased [Recovered/Resolved]
  - Nervousness [Unknown]

NARRATIVE: CASE EVENT DATE: 20150128
